FAERS Safety Report 7744192-5 (Version None)
Quarter: 2011Q3

REPORT INFORMATION
  Report Type: 
  Country: None (occurrence: None)
  Receive Date: 20110912
  Receipt Date: 20110902
  Transmission Date: 20111222
  Serious: Yes (Other)
  Sender: FDA-Public Use
  Company Number: US-ASTRAZENECA-2011SE50523

PATIENT
  Age: 60 Year
  Sex: Female

DRUGS (4)
  1. LORTAB [Concomitant]
  2. MORPHINE [Concomitant]
  3. SEROQUEL [Suspect]
     Indication: MIGRAINE
     Route: 048
  4. SEROQUEL [Suspect]
     Route: 048

REACTIONS (14)
  - IRRITABILITY [None]
  - DIABETES MELLITUS [None]
  - DRUG INEFFECTIVE FOR UNAPPROVED INDICATION [None]
  - HEADACHE [None]
  - OFF LABEL USE [None]
  - PITUITARY TUMOUR [None]
  - INSOMNIA [None]
  - MUSCLE SPASMS [None]
  - DRUG DOSE OMISSION [None]
  - BRAIN NEOPLASM [None]
  - CONVULSION [None]
  - HYPERHIDROSIS [None]
  - APHAGIA [None]
  - SLEEP DISORDER [None]
